FAERS Safety Report 20001234 (Version 1)
Quarter: 2021Q4

REPORT INFORMATION
  Report Type: Spontaneous
  Country: US (occurrence: US)
  Receive Date: 20211026
  Receipt Date: 20211026
  Transmission Date: 20220303
  Serious: Yes (Hospitalization)
  Sender: FDA-Public Use
  Company Number: None

PATIENT
  Age: 67 Year
  Sex: Male
  Weight: 119.5 kg

DRUGS (2)
  1. CYTARABINE [Suspect]
     Active Substance: CYTARABINE
     Dates: end: 20211001
  2. DAUNORUBICIN [Suspect]
     Active Substance: DAUNORUBICIN
     Dates: end: 20210928

REACTIONS (7)
  - Septic shock [None]
  - Respiratory failure [None]
  - Pneumonia klebsiella [None]
  - Klebsiella bacteraemia [None]
  - Perihepatic abscess [None]
  - Splenic infarction [None]
  - Ascites [None]

NARRATIVE: CASE EVENT DATE: 20211017
